FAERS Safety Report 19572618 (Version 2)
Quarter: 2021Q3

REPORT INFORMATION
  Report Type: Spontaneous
  Country: US (occurrence: US)
  Receive Date: 20210716
  Receipt Date: 20210811
  Transmission Date: 20211014
  Serious: Yes (Hospitalization)
  Sender: FDA-Public Use
  Company Number: US-BAUSCH-BL-2021-023211

PATIENT
  Age: 71 Year
  Sex: Male
  Weight: 118.04 kg

DRUGS (4)
  1. FLUNISOLIDE. [Suspect]
     Active Substance: FLUNISOLIDE
     Indication: VASOMOTOR RHINITIS
     Dosage: TWO SPRAYS IN EACH NOSTRIL AT NIGHT TIME, ^ABOUT SEVEN TO EIGHT YEARS AGO
     Route: 045
  2. FLUNISOLIDE. [Suspect]
     Active Substance: FLUNISOLIDE
     Dosage: TWO SPRAYS IN EACH NOSTRIL AT NIGHT TIME
     Route: 045
  3. FLONASE [Suspect]
     Active Substance: FLUTICASONE PROPIONATE
     Dosage: RE?STARTED
     Route: 045
  4. FLONASE [Suspect]
     Active Substance: FLUTICASONE PROPIONATE
     Indication: VASOMOTOR RHINITIS
     Route: 045

REACTIONS (5)
  - Rhinalgia [Unknown]
  - Dyspnoea [Unknown]
  - Dry mouth [Unknown]
  - Cardiovascular disorder [Unknown]
  - Vascular occlusion [Unknown]
